FAERS Safety Report 5587552-3 (Version None)
Quarter: 2008Q1

REPORT INFORMATION
  Report Type: 
  Country: None (occurrence: None)
  Receive Date: 20080107
  Receipt Date: 20060511
  Transmission Date: 20080703
  Serious: Yes (Death)
  Sender: FDA-Public Use
  Company Number: 2006VX001737

PATIENT
  Age: 49 Year
  Sex: Male

DRUGS (3)
  1. LIBRAX [Suspect]
     Dosage: ; BID; PO
     Route: 048
  2. CARDIZEM CD [Suspect]
     Dosage: 180 MG; QD; PO
     Route: 048
  3. ALCOHOL [Concomitant]

REACTIONS (6)
  - ACCIDENTAL OVERDOSE [None]
  - BRADYCARDIA [None]
  - FALL [None]
  - HYPOTENSION [None]
  - RESPIRATORY ARREST [None]
  - VOMITING [None]
